FAERS Safety Report 7409438-1 (Version None)
Quarter: 2011Q2

REPORT INFORMATION
  Report Type: 
  Country: None (occurrence: None)
  Receive Date: 20110412
  Receipt Date: 20110331
  Transmission Date: 20111010
  Serious: Yes (Other)
  Sender: FDA-Public Use
  Company Number: DE-BAYER-2011-031060

PATIENT
  Sex: Female

DRUGS (1)
  1. INTERFERON BETA-1B [Suspect]
     Indication: MULTIPLE SCLEROSIS
     Dosage: 1 ML, QOD
     Route: 058
     Dates: start: 20110301

REACTIONS (6)
  - EXTRASYSTOLES [None]
  - TACHYCARDIA [None]
  - ARTHRALGIA [None]
  - ARRHYTHMIA [None]
  - INFLUENZA LIKE ILLNESS [None]
  - PALPITATIONS [None]
